FAERS Safety Report 7903850-X (Version None)
Quarter: 2011Q4

REPORT INFORMATION
  Report Type: 
  Country: None (occurrence: None)
  Receive Date: 20111109
  Receipt Date: 20111101
  Transmission Date: 20120403
  Serious: Yes (Other)
  Sender: FDA-Public Use
  Company Number: US-ELI_LILLY_AND_COMPANY-US201111000931

PATIENT
  Age: 67 Year
  Sex: Male

DRUGS (6)
  1. PEMETREXED [Suspect]
     Dosage: 375 MG/M2, UNK
  2. QUINAPRIL [Concomitant]
  3. GLYBURIDE [Concomitant]
  4. METFORMIN HCL [Concomitant]
  5. FOLIC ACID [Concomitant]
  6. PEMETREXED [Suspect]
     Indication: BRONCHIAL CARCINOMA
     Dosage: 500 MG/M2, UNK

REACTIONS (5)
  - ARTERIOSCLEROSIS [None]
  - NEPHROPATHY TOXIC [None]
  - GLOMERULAR FILTRATION RATE ABNORMAL [None]
  - TUBULOINTERSTITIAL NEPHRITIS [None]
  - RENAL IMPAIRMENT [None]
